FAERS Safety Report 16551831 (Version 2)
Quarter: 2019Q3

REPORT INFORMATION
  Report Type: Spontaneous
  Country: IT (occurrence: IT)
  Receive Date: 20190710
  Receipt Date: 20190716
  Transmission Date: 20191004
  Serious: Yes (Hospitalization)
  Sender: FDA-Public Use
  Company Number: IT-ASTRAZENECA-2019SE98190

PATIENT
  Age: 85 Year
  Sex: Female

DRUGS (1)
  1. SEROQUEL [Suspect]
     Active Substance: QUETIAPINE FUMARATE
     Indication: DEMENTIA
     Route: 048
     Dates: start: 20190617

REACTIONS (3)
  - Loss of consciousness [Recovering/Resolving]
  - Trismus [Recovering/Resolving]
  - Foaming at mouth [Recovering/Resolving]

NARRATIVE: CASE EVENT DATE: 20190630
